FAERS Safety Report 6450886-4 (Version None)
Quarter: 2009Q4

REPORT INFORMATION
  Report Type: 
  Country: None (occurrence: None)
  Receive Date: 20091123
  Receipt Date: 20091110
  Transmission Date: 20100525
  Serious: Yes (Hospitalization)
  Sender: FDA-Public Use
  Company Number: US-PFIZER INC-2009258399

PATIENT
  Sex: Female
  Weight: 49.887 kg

DRUGS (5)
  1. CISPLATIN [Suspect]
     Indication: BLADDER CANCER
     Dosage: 87 MG, CYCLIC, Q D1
     Route: 042
     Dates: start: 20090706, end: 20090706
  2. CISPLATIN [Suspect]
     Dosage: 87 MG, CYCLIC, Q D1
     Route: 042
     Dates: start: 20090803, end: 20090803
  3. SUNITINIB MALATE [Suspect]
     Indication: BLADDER CANCER
     Dosage: 37.5 MG, 1X/DAY (DAY 1 TO DAY 14 OF EACH CYCLE)
     Dates: start: 20090706, end: 20090719
  4. SUNITINIB MALATE [Suspect]
     Dosage: 37.5 MG, 1X/DAY (DAY 1 TO DAY 14 OF EACH CYCLE)
     Dates: start: 20090803, end: 20090816
  5. GEMCITABINE [Suspect]
     Indication: BLADDER CANCER
     Dosage: 1160 MG, WEEKLY
     Route: 042
     Dates: start: 20090706, end: 20090816

REACTIONS (5)
  - DECUBITUS ULCER [None]
  - HYDRONEPHROSIS [None]
  - MYOCARDIAL INFARCTION [None]
  - SEPSIS [None]
  - URINARY TRACT INFECTION [None]
